FAERS Safety Report 19788141 (Version 2)
Quarter: 2021Q4

REPORT INFORMATION
  Report Type: Spontaneous
  Country: US (occurrence: US)
  Receive Date: 20210903
  Receipt Date: 20211206
  Transmission Date: 20220304
  Serious: No
  Sender: FDA-Public Use
  Company Number: US-HARMONY BIOSCIENCES-2021HMY01160

PATIENT
  Sex: Female
  Weight: 45.351 kg

DRUGS (10)
  1. WAKIX [Suspect]
     Active Substance: PITOLISANT HYDROCHLORIDE
     Indication: Narcolepsy
     Dosage: 35.6 MG, 1X/DAY AT 9 AM
     Route: 048
     Dates: start: 20210618, end: 20210618
  2. WAKIX [Suspect]
     Active Substance: PITOLISANT HYDROCHLORIDE
     Indication: Cataplexy
     Dosage: 17.8 MG, 1X/DAY
     Route: 048
     Dates: start: 2021
  3. WAKIX [Suspect]
     Active Substance: PITOLISANT HYDROCHLORIDE
     Indication: Narcolepsy
     Dosage: 8.9 MG, 1X/DAY
     Route: 048
     Dates: start: 20210630, end: 2021
  4. WAKIX [Suspect]
     Active Substance: PITOLISANT HYDROCHLORIDE
     Indication: Cataplexy
  5. ADDERALL [Suspect]
     Active Substance: AMPHETAMINE ASPARTATE\AMPHETAMINE SULFATE\DEXTROAMPHETAMINE SACCHARATE\DEXTROAMPHETAMINE SULFATE
     Dosage: 10 MG, 1X/DAY
  6. CAFFEINE\DIETARY SUPPLEMENT [Suspect]
     Active Substance: CAFFEINE\DIETARY SUPPLEMENT
     Dosage: UNK, 1X/DAY
  7. MELATONIN [Concomitant]
     Active Substance: MELATONIN
  8. VITAMIN E [Concomitant]
     Active Substance: .ALPHA.-TOCOPHEROL
  9. FISH OIL [Concomitant]
     Active Substance: FISH OIL
  10. ACCUTANE [Concomitant]
     Active Substance: ISOTRETINOIN

REACTIONS (14)
  - Palpitations [Unknown]
  - Panic attack [Unknown]
  - Product dispensing error [Not Recovered/Not Resolved]
  - Drug dose titration not performed [Unknown]
  - Dizziness [Unknown]
  - Vision blurred [Unknown]
  - Visual impairment [Unknown]
  - Agitation [Not Recovered/Not Resolved]
  - Sinus tachycardia [Unknown]
  - Nausea [Unknown]
  - Headache [Unknown]
  - Arthralgia [Unknown]
  - Anxiety [Unknown]
  - Insomnia [Not Recovered/Not Resolved]

NARRATIVE: CASE EVENT DATE: 20210101
